FAERS Safety Report 20869355 (Version 2)
Quarter: 2022Q2

REPORT INFORMATION
  Report Type: Spontaneous
  Country: DZ (occurrence: DZ)
  Receive Date: 20220524
  Receipt Date: 20220531
  Transmission Date: 20220721
  Serious: Yes (Death)
  Sender: FDA-Public Use
  Company Number: DZ-BIOMARINAP-DZ-2022-143412

PATIENT
  Age: 5 Year
  Sex: Male
  Weight: 14 kg

DRUGS (1)
  1. NAGLAZYME [Suspect]
     Active Substance: GALSULFASE
     Indication: Mucopolysaccharidosis VI
     Dosage: 14 MILLIGRAM, QW
     Route: 042
     Dates: start: 20180812

REACTIONS (2)
  - Head injury [Fatal]
  - Fall [Unknown]

NARRATIVE: CASE EVENT DATE: 20220511
